FAERS Safety Report 26075791 (Version 1)
Quarter: 2025Q4

REPORT INFORMATION
  Report Type: Spontaneous
  Country: JP (occurrence: JP)
  Receive Date: 20251121
  Receipt Date: 20251121
  Transmission Date: 20260117
  Serious: Yes (Death, Other)
  Sender: GILEAD
  Company Number: JP-GILEAD-2025-0737481

PATIENT
  Age: 6 Decade

DRUGS (1)
  1. YESCARTA [Suspect]
     Active Substance: AXICABTAGENE CILOLEUCEL
     Indication: Product used for unknown indication
     Dosage: UNK
     Route: 041
     Dates: start: 202501, end: 202501

REACTIONS (4)
  - Death [Fatal]
  - Disease progression [Unknown]
  - Cytokine release syndrome [Unknown]
  - Immune effector cell-associated neurotoxicity syndrome [Unknown]

NARRATIVE: CASE EVENT DATE: 20250101
